FAERS Safety Report 8023906-3 (Version None)
Quarter: 2012Q1

REPORT INFORMATION
  Report Type: 
  Country: None (occurrence: None)
  Receive Date: 20120103
  Receipt Date: 20120103
  Transmission Date: 20120608
  Serious: Yes (Death)
  Sender: FDA-Public Use
  Company Number: None

PATIENT
  Age: 43 Year
  Sex: Female
  Weight: 87.9978 kg

DRUGS (2)
  1. CARBOPLATIN [Suspect]
     Dosage: CARBOPLATIN EVERY 3 WEEKS
  2. TAXOL [Suspect]
     Indication: SQUAMOUS CELL CARCINOMA
     Dosage: TAXOL EVERY 3 WEEKS IV
     Route: 042

REACTIONS (7)
  - PAIN [None]
  - MUSCLE SPASMS [None]
  - CONSTIPATION [None]
  - CONVULSION [None]
  - RENAL FAILURE [None]
  - DEPRESSION [None]
  - NEOPLASM RECURRENCE [None]
